FAERS Safety Report 6017899-8 (Version None)
Quarter: 2008Q4

REPORT INFORMATION
  Report Type: 
  Country: None (occurrence: None)
  Receive Date: 20081223
  Receipt Date: 20081219
  Transmission Date: 20090506
  Serious: Yes (Other)
  Sender: FDA-Public Use
  Company Number: CR-WYE-H07380508

PATIENT
  Sex: Female

DRUGS (1)
  1. PANTECTA [Suspect]
     Dosage: 40 MG, UNKNOWN FREQUENCY
     Route: 048

REACTIONS (2)
  - GASTRIC DISORDER [None]
  - GASTRIC OPERATION [None]
